FAERS Safety Report 14845610 (Version 3)
Quarter: 2018Q3

REPORT INFORMATION
  Report Type: Spontaneous
  Country: US (occurrence: US)
  Receive Date: 20180504
  Receipt Date: 20180904
  Transmission Date: 20181010
  Serious: Yes (Other)
  Sender: FDA-Public Use
  Company Number: US-PFIZER INC-2018183112

PATIENT
  Age: 63 Year
  Sex: Male

DRUGS (1)
  1. XELJANZ XR [Suspect]
     Active Substance: TOFACITINIB CITRATE
     Indication: PSORIATIC ARTHROPATHY
     Dosage: 11 MG, 1X/DAY

REACTIONS (7)
  - Drug ineffective [Not Recovered/Not Resolved]
  - Aphonia [Unknown]
  - Cough [Unknown]
  - Laryngitis [Unknown]
  - Loss of consciousness [Unknown]
  - Malaise [Unknown]
  - Dry throat [Unknown]
